FAERS Safety Report 6493935-X (Version None)
Quarter: 2009Q4

REPORT INFORMATION
  Report Type: 
  Country: None (occurrence: None)
  Receive Date: 20091214
  Receipt Date: 20081125
  Transmission Date: 20100525
  Serious: No
  Sender: FDA-Public Use
  Company Number: US-BRISTOL-MYERS SQUIBB COMPANY-14420608

PATIENT
  Age: 14 Year
  Sex: Female

DRUGS (1)
  1. ABILIFY [Suspect]
     Indication: BIPOLAR DISORDER
     Dosage: 2.5MG QD AT MAY08,INCRE TO 2.5MG BID, 2.5MG IN AM,5MG IN PM,INCRE TO 5MG BID JUN08,DECRE TO 5MG QD.
     Dates: start: 20080501

REACTIONS (1)
  - TREMOR [None]
